FAERS Safety Report 4448435-5 (Version None)
Quarter: 2004Q3

REPORT INFORMATION
  Report Type: 
  Country: None (occurrence: None)
  Receive Date: 20040729
  Receipt Date: 20030818
  Transmission Date: 20050211
  Serious: Yes (Hospitalization)
  Sender: FDA-Public Use
  Company Number: NSADSS2003024110

PATIENT
  Age: 30 Year
  Sex: Male
  Weight: 112.9457 kg

DRUGS (7)
  1. RISPERDAL [Suspect]
     Indication: AFFECTIVE DISORDER
     Dosage: SEE IMAGE
     Route: 048
     Dates: start: 20030113
  2. INSULIN [Concomitant]
  3. DEPAKOTE [Concomitant]
  4. WELLBUTRIN [Concomitant]
  5. LITHIUM CARBONATE [Concomitant]
  6. SYNTHROID [Concomitant]
  7. COGENTIN [Concomitant]

REACTIONS (1)
  - DIABETIC HYPEROSMOLAR COMA [None]
